FAERS Safety Report 8903755 (Version 1)
Quarter: 2012Q4

REPORT INFORMATION
  Report Type: 
  Country: US (occurrence: US)
  Receive Date: 20121113
  Receipt Date: 20121113
  Transmission Date: 20130627
  Serious: No
  Sender: FDA-Public Use
  Company Number: US-JNJFOC-20121102149

PATIENT
  Sex: Female
  Weight: 67.13 kg

DRUGS (6)
  1. SANDOZ FENTANYL TRANSDERMAL SYSTEM [Suspect]
     Indication: FIBROMYALGIA
     Route: 062
     Dates: start: 2010
  2. LEVOTHYROXINE [Concomitant]
     Indication: HYPOTHYROIDISM
     Route: 048
     Dates: start: 1997
  3. PROPRANOLOL [Concomitant]
     Indication: TREMOR
     Route: 048
     Dates: start: 2002
  4. LORTAB [Concomitant]
     Indication: FIBROMYALGIA
     Route: 048
     Dates: start: 2002
  5. XANAX [Concomitant]
     Indication: ANXIETY
     Route: 048
     Dates: start: 2004
  6. LYRICA [Concomitant]
     Indication: FIBROMYALGIA
     Route: 048
     Dates: start: 2007

REACTIONS (3)
  - Drug administered at inappropriate site [Not Recovered/Not Resolved]
  - Application site pruritus [Not Recovered/Not Resolved]
  - Product quality issue [Unknown]
